FAERS Safety Report 13259548 (Version 1)
Quarter: 2017Q1

REPORT INFORMATION
  Report Type: Spontaneous
  Country: DE (occurrence: DE)
  Receive Date: 20170222
  Receipt Date: 20170222
  Transmission Date: 20170428
  Serious: Yes (Congenital Anomaly)
  Sender: FDA-Public Use
  Company Number: DE-AUROBINDO-AUR-APL-2017-29736

PATIENT
  Age: 1 Day
  Sex: Female
  Weight: 3.7 kg

DRUGS (4)
  1. QUETIAPINE. [Suspect]
     Active Substance: QUETIAPINE
     Indication: SCHIZOAFFECTIVE DISORDER
     Dosage: 400 MG, DAILY
     Route: 064
     Dates: start: 20151007, end: 20160712
  2. LAMOTRIGINE. [Suspect]
     Active Substance: LAMOTRIGINE
     Indication: SCHIZOAFFECTIVE DISORDER
     Dosage: FIRST 125-0-125 MG/D THAN 150-0-150 MGLD
     Route: 064
     Dates: start: 20151007, end: 20160712
  3. MISOPROSTOL. [Concomitant]
     Active Substance: MISOPROSTOL
     Indication: LABOUR INDUCTION
     Dosage: UNK
     Route: 064
     Dates: start: 20160712, end: 20160712
  4. INSULIN BASAL [Concomitant]
     Active Substance: INSULIN NOS
     Indication: GESTATIONAL DIABETES
     Dosage: 11 I.E/ DAILY
     Route: 058

REACTIONS (2)
  - Foetal exposure during pregnancy [Not Recovered/Not Resolved]
  - Congenital hydronephrosis [Not Recovered/Not Resolved]

NARRATIVE: CASE EVENT DATE: 20160712
